FAERS Safety Report 18146109 (Version 2)
Quarter: 2020Q3

REPORT INFORMATION
  Report Type: Spontaneous
  Country: JP (occurrence: JP)
  Receive Date: 20200813
  Receipt Date: 20200818
  Transmission Date: 20201103
  Serious: Yes (Hospitalization, Other)
  Sender: FDA-Public Use
  Company Number: JP-PFIZER INC-2020306518

PATIENT
  Age: 73 Year
  Sex: Male
  Weight: 62.5 kg

DRUGS (3)
  1. DENOTAS [Concomitant]
     Active Substance: CALCIUM CARBONATE\CHOLECALCIFEROL\MAGNESIUM CARBONATE
     Dosage: 2 TABLETS
     Route: 048
     Dates: start: 20130828
  2. LORBRENA [Suspect]
     Active Substance: LORLATINIB
     Indication: LUNG ADENOCARCINOMA STAGE IV
     Dosage: 100 MG, DAILY
     Route: 048
     Dates: start: 20200721, end: 20200805
  3. URSODEOXYCHOLIC ACID [Concomitant]
     Active Substance: URSODIOL
     Indication: HEPATIC ENZYME INCREASED
     Dosage: 300 MG, DAILY
     Route: 048
     Dates: start: 20200730

REACTIONS (11)
  - Pleurisy [Unknown]
  - Dyspnoea exertional [Recovering/Resolving]
  - Respiratory failure [Recovering/Resolving]
  - Pericarditis [Unknown]
  - Pleural effusion [Recovering/Resolving]
  - Lung disorder [Recovering/Resolving]
  - Lymphocyte percentage increased [Unknown]
  - Pericardial effusion [Recovering/Resolving]
  - Lung opacity [Not Recovered/Not Resolved]
  - Oxygen saturation decreased [Recovering/Resolving]
  - Hepatic enzyme increased [Unknown]

NARRATIVE: CASE EVENT DATE: 2020
